FAERS Safety Report 9630935 (Version 1)
Quarter: 2013Q4

REPORT INFORMATION
  Report Type: Spontaneous
  Country: US (occurrence: US)
  Receive Date: 20131018
  Receipt Date: 20131018
  Transmission Date: 20140711
  Serious: Yes (Other)
  Sender: FDA-Public Use
  Company Number: US-JNJFOC-20131007045

PATIENT
  Sex: Female

DRUGS (2)
  1. ORTHO EVRA [Suspect]
     Indication: PRODUCT USED FOR UNKNOWN INDICATION
     Route: 062
     Dates: start: 20131007
  2. ORTHO EVRA [Suspect]
     Indication: PRODUCT USED FOR UNKNOWN INDICATION
     Route: 062

REACTIONS (7)
  - Toxic shock syndrome [Unknown]
  - Venous occlusion [Unknown]
  - Aphagia [Unknown]
  - Feeling abnormal [Unknown]
  - Breast enlargement [Recovered/Resolved]
  - Adverse drug reaction [Unknown]
  - Presyncope [Unknown]
